FAERS Safety Report 15597106 (Version 1)
Quarter: 2018Q4

REPORT INFORMATION
  Report Type: Spontaneous
  Country: UG (occurrence: UG)
  Receive Date: 20181108
  Receipt Date: 20181108
  Transmission Date: 20190205
  Serious: Yes (Death, Other)
  Sender: FDA-Public Use
  Company Number: UG-HETERO CORPORATE-HET2018UG01164

PATIENT
  Age: 45 Year
  Sex: Male

DRUGS (4)
  1. FLUCONAZOLE. [Suspect]
     Active Substance: FLUCONAZOLE
     Indication: MENINGITIS CRYPTOCOCCAL
     Dosage: 800 MG, QD
     Route: 065
  2. METRONIDAZOLE. [Concomitant]
     Active Substance: METRONIDAZOLE
     Indication: INFECTIOUS COLITIS
     Dosage: UNK
     Route: 065
  3. CIPROFLOXACIN. [Concomitant]
     Active Substance: CIPROFLOXACIN
     Indication: INFECTIOUS COLITIS
     Dosage: UNK
     Route: 065
  4. EFAVIRENZ+LAMIVUDINE+TENOFOVIR [Suspect]
     Active Substance: EFAVIRENZ\LAMIVUDINE\TENOFOVIR DISOPROXIL FUMARATE
     Indication: HIV INFECTION
     Dosage: UNK
     Route: 065

REACTIONS (3)
  - Immune reconstitution inflammatory syndrome [Fatal]
  - Condition aggravated [Fatal]
  - Meningitis cryptococcal [Fatal]
